FAERS Safety Report 17121304 (Version 1)
Quarter: 2019Q4

REPORT INFORMATION
  Report Type: Spontaneous
  Country: US (occurrence: US)
  Receive Date: 20191206
  Receipt Date: 20191206
  Transmission Date: 20200122
  Serious: No
  Sender: FDA-Public Use
  Company Number: US-UCBSA-2017023994

PATIENT
  Age: 52 Year
  Sex: Female

DRUGS (2)
  1. AMANDINE [Concomitant]
     Dosage: 100 MG, 2X/DAY (BID)
  2. NEUPRO [Suspect]
     Active Substance: ROTIGOTINE
     Indication: PARKINSON^S DISEASE
     Dosage: 4 MG PATCH
     Dates: start: 201701

REACTIONS (3)
  - Insomnia [Not Recovered/Not Resolved]
  - Product adhesion issue [Unknown]
  - Restless legs syndrome [Not Recovered/Not Resolved]

NARRATIVE: CASE EVENT DATE: 201701
